FAERS Safety Report 5121536-4 (Version None)
Quarter: 2006Q4

REPORT INFORMATION
  Report Type: 
  Country: None (occurrence: None)
  Receive Date: 20061006
  Receipt Date: 20060912
  Transmission Date: 20070319
  Serious: Yes (Hospitalization)
  Sender: FDA-Public Use
  Company Number: 2006AP04286

PATIENT
  Age: 71 Year
  Sex: Male
  Weight: 110 kg

DRUGS (7)
  1. NAROPIN [Suspect]
     Indication: SPINAL ANAESTHESIA
     Dosage: 1.5ML OF 1% SOLUTION DILUTED TO 0.5% WITH 1.5ML STERILE WATER.
     Route: 037
     Dates: start: 20060410, end: 20060410
  2. NAROPIN [Suspect]
     Indication: EPIDURAL ANAESTHESIA
     Dosage: 1.5ML OF 1% SOLUTION DILUTED TO 0.5% WITH 1.5ML STERILE WATER.
     Route: 037
     Dates: start: 20060410, end: 20060410
  3. NAROPIN [Suspect]
     Indication: TRANSURETHRAL PROSTATECTOMY
     Dosage: 1.5ML OF 1% SOLUTION DILUTED TO 0.5% WITH 1.5ML STERILE WATER.
     Route: 037
     Dates: start: 20060410, end: 20060410
  4. NAROPIN [Suspect]
     Dosage: ADMINISTERED WITH BUPIVACAINE
     Route: 008
     Dates: start: 20060410
  5. NAROPIN [Suspect]
     Dosage: ADMINISTERED WITH BUPIVACAINE
     Route: 008
     Dates: start: 20060410
  6. NAROPIN [Suspect]
     Dosage: ADMINISTERED WITH BUPIVACAINE
     Route: 008
     Dates: start: 20060410
  7. BUPIVACAINE [Suspect]
     Indication: EPIDURAL ANAESTHESIA
     Dosage: ADMINISTERED WITH ROPIVACAINE
     Route: 008
     Dates: start: 20060410

REACTIONS (3)
  - CAUDA EQUINA SYNDROME [None]
  - FAECALITH [None]
  - INTERVERTEBRAL DISC PROTRUSION [None]
